FAERS Safety Report 10155938 (Version 1)
Quarter: 2014Q2

REPORT INFORMATION
  Report Type: Spontaneous
  Country: US (occurrence: US)
  Receive Date: 20140506
  Receipt Date: 20140506
  Transmission Date: 20141212
  Serious: No
  Sender: FDA-Public Use
  Company Number: US-009507513-2012SP007145

PATIENT
  Age: 12 Year
  Sex: Male
  Weight: 60 kg

DRUGS (3)
  1. CLARITIN [Suspect]
     Indication: HYPERSENSITIVITY
     Dosage: 10 MG, BID
     Route: 048
     Dates: start: 20120131, end: 20120201
  2. CLARITIN [Suspect]
     Dosage: 10 MG, QD
     Route: 048
  3. DEXTROMETHORPHAN HYDROBROMIDE (+) GUAIFENESIN [Concomitant]
     Indication: PRODUCT USED FOR UNKNOWN INDICATION

REACTIONS (1)
  - Overdose [Unknown]
